FAERS Safety Report 8658573 (Version 2)
Quarter: 2012Q4

REPORT INFORMATION
  Report Type: 
  Country: US (occurrence: US)
  Receive Date: 20120710
  Receipt Date: 20121218
  Transmission Date: 20130627
  Serious: Yes (Death, Life-Threatening)
  Sender: FDA-Public Use
  Company Number: US-ROCHE-1085820

PATIENT
  Age: 76 Year
  Sex: Male
  Weight: 109.41 kg

DRUGS (15)
  1. CELLCEPT [Suspect]
     Indication: RENAL TRANSPLANT
     Route: 048
     Dates: start: 20030519, end: 20120112
  2. ASPIRIN [Concomitant]
     Indication: CARDIOVASCULAR DISORDER
     Route: 048
     Dates: start: 20111219
  3. BACTRIM DS [Concomitant]
     Indication: PROPHYLAXIS
     Dosage: 800-160
     Route: 048
     Dates: start: 20111219
  4. CARVEDILOL [Concomitant]
     Indication: HYPERTENSION
     Route: 048
     Dates: start: 20111219
  5. CILOSTAZOL [Concomitant]
     Indication: PERIPHERAL VASCULAR DISORDER
     Route: 048
     Dates: start: 20111219
  6. CLONIDINE [Concomitant]
     Indication: HYPERTENSION
     Route: 048
     Dates: start: 20111219
  7. DIORAN [Concomitant]
     Indication: HYPERTENSION
     Route: 048
     Dates: start: 20111219
  8. FAMOTIDINE [Concomitant]
     Route: 048
     Dates: start: 20111219
  9. FUROSEMIDE [Concomitant]
     Indication: OEDEMA
     Route: 048
     Dates: start: 20111219
  10. 70/30 HUMAN INSULIN [Concomitant]
     Indication: DIABETES MELLITUS
     Route: 058
     Dates: start: 20111219
  11. ISOSORBIDE MONONITRATE [Concomitant]
     Route: 048
     Dates: start: 20111219
  12. LUTEIN [Concomitant]
     Route: 048
     Dates: start: 20111219
  13. PREDNISONE [Concomitant]
     Indication: TRANSPLANT
     Route: 048
     Dates: start: 20111219
  14. RAPAMUNE [Concomitant]
     Indication: TRANSPLANT
     Route: 048
     Dates: start: 20111219
  15. VYTORIN [Concomitant]
     Indication: HYPERLIPIDAEMIA
     Dosage: 10-40
     Route: 048
     Dates: start: 20111219

REACTIONS (4)
  - Respiratory failure [Fatal]
  - Coma [Fatal]
  - Cardiac arrest [Recovered/Resolved with Sequelae]
  - Mental status changes [Unknown]
